FAERS Safety Report 4483748-2 (Version None)
Quarter: 2004Q4

REPORT INFORMATION
  Report Type: 
  Country: None (occurrence: None)
  Receive Date: 20041021
  Receipt Date: 20041013
  Transmission Date: 20050328
  Serious: Yes (Other)
  Sender: FDA-Public Use
  Company Number: 2004233674US

PATIENT
  Age: 66 Year
  Sex: Female
  Weight: 129.3 kg

DRUGS (8)
  1. DETROL LA [Suspect]
     Indication: HYPERTONIC BLADDER
     Dosage: SEE IMAGE
     Route: 048
     Dates: start: 20031201, end: 20040701
  2. HYDROCHLOROTHIAZIDE [Concomitant]
  3. CLEMASTINE (CLEMASTINE) [Concomitant]
  4. TRAZODONE HCL [Concomitant]
  5. CELEXA [Concomitant]
  6. NEURONTIN [Concomitant]
  7. COUMADIN [Concomitant]
  8. RANITIDINE [Concomitant]

REACTIONS (15)
  - ABDOMINAL DISTENSION [None]
  - ABDOMINAL PAIN [None]
  - ABDOMINAL PAIN LOWER [None]
  - ACCIDENTAL EXPOSURE [None]
  - CONSTIPATION [None]
  - DIVERTICULITIS [None]
  - DIVERTICULUM [None]
  - DRUG INEFFECTIVE [None]
  - DRY MOUTH [None]
  - FEELING ABNORMAL [None]
  - LARGE INTESTINAL ULCER [None]
  - NAUSEA [None]
  - NEPHROLITHIASIS [None]
  - REACTION TO COLOURING [None]
  - WATER POLLUTION [None]
